FAERS Safety Report 16412142 (Version 1)
Quarter: 2019Q2

REPORT INFORMATION
  Report Type: Spontaneous
  Country: US (occurrence: US)
  Receive Date: 20190610
  Receipt Date: 20190610
  Transmission Date: 20190711
  Serious: No
  Sender: FDA-Public Use
  Company Number: US-GLAXOSMITHKLINE-US2019GSK063683

PATIENT
  Sex: Female

DRUGS (4)
  1. MALARONE [Suspect]
     Active Substance: ATOVAQUONE\PROGUANIL HYDROCHLORIDE
     Indication: BABESIOSIS
     Dosage: 750 MG, BID
     Route: 048
  2. CLINDAMYCIN. [Concomitant]
     Active Substance: CLINDAMYCIN
  3. ARTEMISININ [Concomitant]
     Active Substance: DIETARY SUPPLEMENT
  4. AZITHROMYCIN ANHYDROUS. [Concomitant]
     Active Substance: AZITHROMYCIN ANHYDROUS

REACTIONS (8)
  - Sleep terror [Unknown]
  - Pyrexia [Unknown]
  - Hallucination [Unknown]
  - Night sweats [Unknown]
  - Overdose [Unknown]
  - Screaming [Unknown]
  - Fear [Unknown]
  - Adverse drug reaction [Unknown]
